FAERS Safety Report 9938221 (Version 1)
Quarter: 2014Q1

REPORT INFORMATION
  Report Type: Spontaneous
  Country: US (occurrence: US)
  Receive Date: 20140303
  Receipt Date: 20140303
  Transmission Date: 20141002
  Serious: No
  Sender: FDA-Public Use
  Company Number: US-ABBVIE-13P-163-1031234-00

PATIENT
  Age: 28 Year
  Sex: Female

DRUGS (3)
  1. HUMIRA [Suspect]
     Indication: PSORIASIS
     Dates: start: 20121128, end: 20130102
  2. ZOLOFT [Concomitant]
     Indication: DEPRESSION
  3. CLOBETASOL [Concomitant]
     Indication: PSORIASIS
     Route: 061

REACTIONS (2)
  - Polymenorrhoea [Not Recovered/Not Resolved]
  - Anaemia [Not Recovered/Not Resolved]
